FAERS Safety Report 7873762-9 (Version None)
Quarter: 2011Q4

REPORT INFORMATION
  Report Type: 
  Country: None (occurrence: None)
  Receive Date: 20111030
  Receipt Date: 20110510
  Transmission Date: 20120403
  Serious: No
  Sender: FDA-Public Use
  Company Number: US-AMGEN-USASP2011024387

PATIENT
  Age: 60 Year
  Sex: Female

DRUGS (1)
  1. ENBREL [Suspect]
     Indication: PSORIATIC ARTHROPATHY
     Dosage: 50 MG, QWK
     Dates: start: 20031009, end: 20110418

REACTIONS (6)
  - TOOTHACHE [None]
  - FATIGUE [None]
  - SINUS DISORDER [None]
  - PYREXIA [None]
  - SINUSITIS [None]
  - OTORRHOEA [None]
